FAERS Safety Report 4886065-1 (Version None)
Quarter: 2006Q1

REPORT INFORMATION
  Report Type: 
  Country: None (occurrence: None)
  Receive Date: 20060117
  Receipt Date: 20060110
  Transmission Date: 20060701
  Serious: Yes (Other)
  Sender: FDA-Public Use
  Company Number: 200514438GDS

PATIENT
  Sex: Female

DRUGS (1)
  1. CANESTEN (CLOTRIMAZOLE) [Suspect]
     Indication: VULVOVAGINAL MYCOTIC INFECTION
     Dosage: 0.5 G, TOTAL DAILY, VAGINAL
     Route: 067
     Dates: start: 20051201

REACTIONS (2)
  - ABORTION SPONTANEOUS [None]
  - DRUG EXPOSURE DURING PREGNANCY [None]
